FAERS Safety Report 5016063-9 (Version None)
Quarter: 2006Q2

REPORT INFORMATION
  Report Type: 
  Country: None (occurrence: None)
  Receive Date: 20060414
  Receipt Date: 20060310
  Transmission Date: 20061013
  Serious: No
  Sender: FDA-Public Use
  Company Number: 2006SP001190

PATIENT
  Age: 67 Year
  Sex: Male
  Weight: 94.3482 kg

DRUGS (4)
  1. LUNESTA [Suspect]
     Indication: INSOMNIA
     Dosage: 3 MG; 1X; ORAL
     Route: 048
     Dates: start: 20060222, end: 20060222
  2. LOTREL [Concomitant]
  3. LEVOTHYROXINE SODIUM [Concomitant]
  4. AMBIEN [Concomitant]

REACTIONS (4)
  - DYSGEUSIA [None]
  - NERVOUSNESS [None]
  - TREMOR [None]
  - VOMITING [None]
